FAERS Safety Report 25635935 (Version 2)
Quarter: 2025Q4

REPORT INFORMATION
  Report Type: Spontaneous
  Country: EU (occurrence: EU)
  Receive Date: 20250803
  Receipt Date: 20251024
  Transmission Date: 20260117
  Serious: Yes (Hospitalization)
  Sender: AUROBINDO
  Company Number: EU-MYLANLABS-2025M1056617

PATIENT
  Age: 45 Year
  Sex: Female

DRUGS (4)
  1. FENTANYL [Suspect]
     Active Substance: FENTANYL
     Indication: Sciatica
     Dosage: UNK
     Route: 065
  2. ACETAMINOPHEN [Suspect]
     Active Substance: ACETAMINOPHEN
     Indication: Sciatica
     Dosage: UNK
     Route: 065
  3. METAMIZOLE [Suspect]
     Active Substance: METAMIZOLE
     Indication: Sciatica
     Dosage: UNK
     Route: 065
  4. AMITRIPTYLINE [Suspect]
     Active Substance: AMITRIPTYLINE
     Indication: Sciatica
     Dosage: UNK
     Route: 065

REACTIONS (8)
  - Pain [Unknown]
  - Limb discomfort [Unknown]
  - Oedema peripheral [Unknown]
  - Skin discolouration [Unknown]
  - Neuralgia [Unknown]
  - Allodynia [Unknown]
  - Peripheral nerve lesion [Unknown]
  - Nerve injury [Unknown]
